FAERS Safety Report 8411436-6 (Version None)
Quarter: 2012Q2

REPORT INFORMATION
  Report Type: 
  Country: None (occurrence: None)
  Receive Date: 20120605
  Receipt Date: 20120507
  Transmission Date: 20120825
  Serious: No
  Sender: FDA-Public Use
  Company Number: US-AMGEN-USASP2012028513

PATIENT
  Age: 57 Year
  Sex: Female

DRUGS (2)
  1. REMICADE [Concomitant]
     Dosage: UNK
  2. ENBREL [Suspect]
     Indication: RHEUMATOID ARTHRITIS
     Dosage: 50 MG, QWK
     Dates: start: 20070717, end: 20120420

REACTIONS (12)
  - ALOPECIA [None]
  - CONTUSION [None]
  - CHEST PAIN [None]
  - RASH [None]
  - NASOPHARYNGITIS [None]
  - COUGH [None]
  - INJECTION SITE HAEMATOMA [None]
  - INJECTION SITE IRRITATION [None]
  - INJECTION SITE ANAESTHESIA [None]
  - IMMUNE SYSTEM DISORDER [None]
  - FOOT OPERATION [None]
  - RHEUMATOID ARTHRITIS [None]
